FAERS Safety Report 9658014 (Version 1)
Quarter: 2013Q4

REPORT INFORMATION
  Report Type: Spontaneous
  Country: CA (occurrence: None)
  Receive Date: 20131029
  Receipt Date: 20131029
  Transmission Date: 20140711
  Serious: Yes (Hospitalization)
  Sender: FDA-Public Use
  Company Number: B0936453A

PATIENT
  Sex: Male

DRUGS (2)
  1. ACYCLOVIR (ACYCLOVIR) [Suspect]
     Indication: HAIR GROWTH ABNORMAL
     Route: 042
  2. COLCHICINE [Concomitant]

REACTIONS (7)
  - Nausea [None]
  - Headache [None]
  - Rash vesicular [None]
  - Renal failure acute [None]
  - Respiratory arrest [None]
  - Cerebral haemorrhage [None]
  - Vomiting [None]
